FAERS Safety Report 17173682 (Version 1)
Quarter: 2019Q4

REPORT INFORMATION
  Report Type: Spontaneous
  Country: US (occurrence: US)
  Receive Date: 20191219
  Receipt Date: 20191219
  Transmission Date: 20200122
  Serious: No
  Sender: FDA-Public Use
  Company Number: US-SUPERNUS PHARMACEUTICALS, INC.-2019SUP00298

PATIENT
  Age: 73 Year
  Sex: Male

DRUGS (2)
  1. OXTELLAR XR [Suspect]
     Active Substance: OXCARBAZEPINE
     Dosage: 1200 MG, 1X/DAY IN THE PM
     Dates: end: 20190425
  2. OXTELLAR XR [Suspect]
     Active Substance: OXCARBAZEPINE
     Indication: EPILEPSY
     Dosage: 600 MG, 1X/DAY IN THE AM
     Dates: end: 20190425

REACTIONS (2)
  - Off label use [Not Recovered/Not Resolved]
  - Hyponatraemia [Not Recovered/Not Resolved]
